FAERS Safety Report 11113231 (Version 1)
Quarter: 2015Q2

REPORT INFORMATION
  Report Type: Spontaneous
  Country: US (occurrence: US)
  Receive Date: 20150514
  Receipt Date: 20150514
  Transmission Date: 20150821
  Serious: No
  Sender: FDA-Public Use
  Company Number: US-009507513-1505USA005118

PATIENT
  Age: 64 Year
  Sex: Male

DRUGS (1)
  1. PRIMAXIN IM [Suspect]
     Active Substance: CILASTATIN SODIUM\IMIPENEM
     Indication: URINARY TRACT INFECTION

REACTIONS (1)
  - Shared psychotic disorder [Recovered/Resolved]
